FAERS Safety Report 24880615 (Version 2)
Quarter: 2025Q1

REPORT INFORMATION
  Report Type: Spontaneous
  Country: JP (occurrence: JP)
  Receive Date: 20250123
  Receipt Date: 20250306
  Transmission Date: 20250409
  Serious: Yes (Death)
  Sender: GLAXOSMITHKLINE
  Company Number: JP-GSK-JP2025JPN007601

PATIENT

DRUGS (1)
  1. DAPRODUSTAT [Suspect]
     Active Substance: DAPRODUSTAT
     Indication: Nephrogenic anaemia
     Dosage: 4 MG, 1D
     Route: 048

REACTIONS (1)
  - Marasmus [Fatal]
